FAERS Safety Report 20222610 (Version 5)
Quarter: 2022Q3

REPORT INFORMATION
  Report Type: Report from Study
  Country: JP (occurrence: JP)
  Receive Date: 20211223
  Receipt Date: 20220904
  Transmission Date: 20221027
  Serious: Yes (Death, Hospitalization)
  Sender: FDA-Public Use
  Company Number: JP-JNJJAKJPN-202060377

PATIENT
  Age: 72 Year
  Sex: Male

DRUGS (8)
  1. ERLEADA [Suspect]
     Active Substance: APALUTAMIDE
     Indication: Prostate cancer metastatic
     Route: 048
     Dates: start: 20200811, end: 2020
  2. ERLEADA [Suspect]
     Active Substance: APALUTAMIDE
     Indication: Prostate cancer metastatic
     Dosage: DOSE UNKNOWN, OVERDOSE
     Route: 048
     Dates: start: 202008, end: 202008
  3. ERLEADA [Suspect]
     Active Substance: APALUTAMIDE
     Indication: Prostate cancer metastatic
     Route: 048
     Dates: start: 2020, end: 20220703
  4. DEGARELIX [Suspect]
     Active Substance: DEGARELIX
     Indication: Prostate cancer metastatic
     Dosage: DOSE UNKNOWN
     Route: 058
     Dates: start: 20200714, end: 20210822
  5. OTHER HORMONE PREPARATIONS(INCLUDING ANTIHORMONE PREPARATIONS) [Concomitant]
     Indication: Prostate cancer metastatic
     Dosage: DOSE UNKNOWN
     Route: 065
     Dates: start: 20210823, end: 20211114
  6. OTHER HORMONE PREPARATIONS(INCLUDING ANTIHORMONE PREPARATIONS) [Concomitant]
     Dosage: DOSE UNKNOWN
     Route: 065
     Dates: start: 20211115, end: 20220424
  7. OTHER HORMONE PREPARATIONS(INCLUDING ANTIHORMONE PREPARATIONS) [Concomitant]
     Dosage: DOSE UNKNOWN
     Route: 065
     Dates: start: 20220425
  8. LEUPLIN [Concomitant]
     Active Substance: LEUPROLIDE ACETATE
     Route: 058
     Dates: start: 20220523

REACTIONS (12)
  - Cerebral haemorrhage [Fatal]
  - Aortic aneurysm [Recovering/Resolving]
  - Insomnia [Recovered/Resolved]
  - Hot flush [Recovered/Resolved]
  - Injection site induration [Recovered/Resolved]
  - Injection site pain [Recovered/Resolved]
  - Epididymitis [Recovered/Resolved]
  - Constipation [Not Recovered/Not Resolved]
  - Decreased appetite [Recovered/Resolved]
  - Fall [Recovered/Resolved]
  - Avulsion fracture [Recovering/Resolving]
  - Overdose [Unknown]

NARRATIVE: CASE EVENT DATE: 20200701
